FAERS Safety Report 4601614-6 (Version None)
Quarter: 2005Q1

REPORT INFORMATION
  Report Type: 
  Country: None (occurrence: None)
  Receive Date: 20050308
  Receipt Date: 20050304
  Transmission Date: 20050727
  Serious: Yes (Death, Hospitalization)
  Sender: FDA-Public Use
  Company Number: 118

PATIENT
  Age: 65 Year
  Sex: Female

DRUGS (10)
  1. MELPHALAN [Suspect]
     Indication: MULTIPLE MYELOMA
     Dosage: 200MGM2 CYCLIC
     Route: 042
     Dates: start: 20040720
  2. REGLAN [Concomitant]
  3. CARTIA XT [Concomitant]
  4. MULTI-VITAMIN [Concomitant]
  5. FOLIC ACID [Concomitant]
  6. ACYCLOVIR [Concomitant]
  7. MAGNESIUM OXIDE [Concomitant]
  8. SENNA [Concomitant]
  9. XANAX [Concomitant]
  10. OXYCODONE HCL [Concomitant]

REACTIONS (12)
  - ABDOMINAL PAIN [None]
  - BLOOD DISORDER [None]
  - COLITIS [None]
  - CONVULSION [None]
  - DEPRESSED LEVEL OF CONSCIOUSNESS [None]
  - DIARRHOEA [None]
  - ELECTROLYTE IMBALANCE [None]
  - MUCOSAL INFLAMMATION [None]
  - MULTIPLE MYELOMA [None]
  - NAUSEA [None]
  - SEPTIC SHOCK [None]
  - VOMITING [None]
